FAERS Safety Report 4662030-4 (Version None)
Quarter: 2005Q2

REPORT INFORMATION
  Report Type: 
  Country: None (occurrence: None)
  Receive Date: 20050516
  Receipt Date: 20050505
  Transmission Date: 20051028
  Serious: Yes (Death)
  Sender: FDA-Public Use
  Company Number: US-ABBOTT-05P-163-0300162-00

PATIENT
  Sex: Female

DRUGS (20)
  1. HUMIRA [Suspect]
     Indication: RHEUMATOID ARTHRITIS
     Route: 058
     Dates: start: 20010524, end: 20050421
  2. CALCIUM WITH VITAMIN D [Concomitant]
     Indication: VITAMIN SUPPLEMENTATION
     Route: 048
     Dates: start: 19960101, end: 20050501
  3. MULTI-VITAMINS [Concomitant]
     Indication: VITAMIN SUPPLEMENTATION
     Route: 048
     Dates: start: 19960101, end: 20050501
  4. FEXOFENADINE HCL [Concomitant]
     Indication: RHINITIS ALLERGIC
     Route: 048
     Dates: start: 20000920, end: 20050501
  5. PSEUDOEPHEDRINE HYDROCHLORIDE [Concomitant]
     Indication: RHINITIS ALLERGIC
     Route: 048
     Dates: start: 20000920, end: 20050501
  6. CYCLOBENZAPRINE HCL [Concomitant]
     Indication: FIBROMYALGIA
     Route: 048
     Dates: start: 20010520, end: 20050501
  7. RABEPRAZOLE SODIUM [Concomitant]
     Indication: GASTROOESOPHAGEAL REFLUX DISEASE
     Route: 048
     Dates: start: 20021114, end: 20040201
  8. PILOCARPINE HYDROCHLORIDE [Concomitant]
     Indication: SJOGREN'S SYNDROME
     Route: 048
     Dates: start: 20021113, end: 20050501
  9. MONTELUKAST SODIUM [Concomitant]
     Indication: BRONCHITIS CHRONIC
     Route: 048
     Dates: start: 20030120, end: 20050501
  10. ZETIA [Concomitant]
     Indication: HYPERCHOLESTEROLAEMIA
     Route: 048
     Dates: start: 20030121, end: 20050501
  11. TRAZADONE [Concomitant]
     Indication: FIBROMYALGIA
     Route: 048
     Dates: start: 20030508, end: 20050501
  12. CLOPIDOGREL BISULFATE [Concomitant]
     Indication: VASCULITIS
     Route: 048
     Dates: start: 20030606, end: 20050501
  13. NYSTATIN [Concomitant]
     Indication: CANDIDIASIS
     Route: 048
     Dates: start: 20030527, end: 20050501
  14. DOCUSATE CALCIUM [Concomitant]
     Indication: CONSTIPATION
     Route: 048
     Dates: start: 20030716, end: 20050501
  15. FLUTICASONE PROPIONATE [Concomitant]
     Indication: RHINITIS ALLERGIC
     Dosage: 2 SQUIRTS
     Dates: start: 20030722, end: 20050501
  16. FORTEO [Concomitant]
     Indication: OSTEOPOROSIS
     Route: 058
     Dates: start: 20040702, end: 20050501
  17. ZELNORM [Concomitant]
     Indication: IRRITABLE BOWEL SYNDROME
     Route: 048
     Dates: start: 20040412, end: 20050501
  18. OXYCODONE HCL [Concomitant]
     Indication: RHEUMATOID ARTHRITIS
     Route: 048
     Dates: start: 20030606, end: 20050501
  19. METHOTREXATE [Concomitant]
     Indication: RHEUMATOID ARTHRITIS
     Route: 048
     Dates: start: 20030508, end: 20040707
  20. METHOTREXATE [Concomitant]
     Route: 048
     Dates: start: 20040708, end: 20050501

REACTIONS (1)
  - BRAIN STEM HAEMORRHAGE [None]
